FAERS Safety Report 12586417 (Version 1)
Quarter: 2016Q3

REPORT INFORMATION
  Report Type: Report from Study
  Country: GB (occurrence: GB)
  Receive Date: 20160725
  Receipt Date: 20160725
  Transmission Date: 20161109
  Serious: Yes (Hospitalization)
  Sender: FDA-Public Use
  Company Number: GB-ROCHE-1793179

PATIENT
  Sex: Male

DRUGS (1)
  1. OBINUTUZUMAB [Suspect]
     Active Substance: OBINUTUZUMAB
     Indication: CHRONIC LYMPHOCYTIC LEUKAEMIA
     Dosage: DATE OF MOST RECENT DOSE 18/DEC/2015
     Route: 042
     Dates: start: 20150917

REACTIONS (8)
  - Pyrexia [Recovered/Resolved]
  - Neutropenia [Recovered/Resolved]
  - Productive cough [Recovered/Resolved with Sequelae]
  - Malaise [Recovered/Resolved with Sequelae]
  - Chills [Recovered/Resolved with Sequelae]
  - C-reactive protein increased [Recovered/Resolved]
  - Sepsis [Recovered/Resolved with Sequelae]
  - Infection [Recovered/Resolved]

NARRATIVE: CASE EVENT DATE: 20160604
